FAERS Safety Report 16502303 (Version 1)
Quarter: 2019Q3

REPORT INFORMATION
  Report Type: Spontaneous
  Country: US (occurrence: US)
  Receive Date: 20190630
  Receipt Date: 20190630
  Transmission Date: 20191004
  Serious: Yes (Disabling, Other)
  Sender: FDA-Public Use
  Company Number: None

PATIENT
  Age: 58 Year
  Sex: Female
  Weight: 44.1 kg

DRUGS (1)
  1. CLONAZEPAM. [Suspect]
     Active Substance: CLONAZEPAM
     Indication: ANXIETY
     Dosage: ?          QUANTITY:60 TABLET(S);?
     Route: 048
     Dates: start: 20190415

REACTIONS (6)
  - Drug ineffective [None]
  - Insomnia [None]
  - Product substitution issue [None]
  - Anxiety [None]
  - Disturbance in attention [None]
  - Heart rate increased [None]

NARRATIVE: CASE EVENT DATE: 20190501
